FAERS Safety Report 26101381 (Version 2)
Quarter: 2025Q4

REPORT INFORMATION
  Report Type: Spontaneous
  Country: US (occurrence: US)
  Receive Date: 20251128
  Receipt Date: 20251210
  Transmission Date: 20260118
  Serious: No
  Sender: LUPIN
  Company Number: US-LUPIN PHARMACEUTICALS INC.-2025-10650

PATIENT

DRUGS (6)
  1. TOLVAPTAN [Suspect]
     Active Substance: TOLVAPTAN
     Indication: Congenital cystic kidney disease
     Dosage: 45 MILLIGRAM, QD (UPON WAKING IN MORNING)
  2. TOLVAPTAN [Suspect]
     Active Substance: TOLVAPTAN
     Indication: Congenital cystic kidney disease
     Dosage: 15 MILLIGRAM, QD (8 HOUR LATER)
  3. CALCIUM CITRATE [Concomitant]
     Active Substance: CALCIUM CITRATE
     Indication: Product used for unknown indication
     Dosage: UNK
     Route: 065
  4. JYNARQUE [Concomitant]
     Active Substance: TOLVAPTAN
     Indication: Product used for unknown indication
     Dosage: UNK (45/15 MG PAK)
     Route: 065
  5. NIFEDIPINE [Concomitant]
     Active Substance: NIFEDIPINE
     Indication: Product used for unknown indication
     Dosage: UNK
     Route: 065
  6. TYLENOL [Concomitant]
     Active Substance: ACETAMINOPHEN
     Indication: Product used for unknown indication
     Dosage: UNK
     Route: 065

REACTIONS (8)
  - Dyspepsia [Unknown]
  - Gastrooesophageal reflux disease [Unknown]
  - Flatulence [Unknown]
  - Diarrhoea [Unknown]
  - Thirst [Unknown]
  - Dry mouth [Unknown]
  - Pollakiuria [Unknown]
  - Weight decreased [Unknown]
